FAERS Safety Report 5839358-5 (Version None)
Quarter: 2008Q3

REPORT INFORMATION
  Report Type: 
  Country: None (occurrence: None)
  Receive Date: 20080806
  Receipt Date: 20080728
  Transmission Date: 20090109
  Serious: Yes (Hospitalization)
  Sender: FDA-Public Use
  Company Number: TCI2008A03887

PATIENT
  Age: 75 Year
  Sex: Female

DRUGS (4)
  1. ACTOS [Suspect]
     Indication: DIABETES MELLITUS
     Dosage: 30 MG (30 MG, 1 IN 1 D), PER ORAL
     Route: 048
     Dates: start: 20080610, end: 20080610
  2. STRONG NEO-MINOPHAGEN [Concomitant]
  3. C (CYSTEINE, AMINOACETIC ACID,GLYCYRRHIZIC ACID) [Concomitant]
  4. URSO 250 [Concomitant]

REACTIONS (2)
  - DEEP VEIN THROMBOSIS [None]
  - DIZZINESS [None]
